FAERS Safety Report 14966775 (Version 1)
Quarter: 2018Q2

REPORT INFORMATION
  Report Type: Spontaneous
  Country: GB (occurrence: GB)
  Receive Date: 20180604
  Receipt Date: 20180604
  Transmission Date: 20180711
  Serious: No
  Sender: FDA-Public Use
  Company Number: GB-CHEPLA-C20171007

PATIENT
  Age: 33 Year
  Sex: Female
  Weight: 114 kg

DRUGS (3)
  1. CITALOPRAM HYDROCHLORIDE [Concomitant]
     Active Substance: CITALOPRAM HYDROCHLORIDE
  2. ORLISTAT. [Suspect]
     Active Substance: ORLISTAT
     Route: 048
     Dates: start: 20170327
  3. CERELLE [Concomitant]
     Active Substance: DESOGESTREL

REACTIONS (2)
  - Diarrhoea [Unknown]
  - Pregnancy [Unknown]
